FAERS Safety Report 8303183-6 (Version None)
Quarter: 2012Q2

REPORT INFORMATION
  Report Type: 
  Country: None (occurrence: None)
  Receive Date: 20120423
  Receipt Date: 20120411
  Transmission Date: 20120825
  Serious: No
  Sender: FDA-Public Use
  Company Number: US-BIOGENIDEC-2011BI048568

PATIENT
  Age: 57 Year
  Sex: Female

DRUGS (1)
  1. TYSABRI [Suspect]
     Indication: MULTIPLE SCLEROSIS
     Route: 042
     Dates: start: 20110929, end: 20120206

REACTIONS (11)
  - REGURGITATION [None]
  - RESPIRATORY TRACT INFECTION [None]
  - SINUSITIS [None]
  - NAUSEA [None]
  - DYSPNOEA [None]
  - COUGH [None]
  - SOMNOLENCE [None]
  - CHEST PAIN [None]
  - FLUSHING [None]
  - PHOTOPSIA [None]
  - CHEST DISCOMFORT [None]
